FAERS Safety Report 11703490 (Version 1)
Quarter: 2015Q4

REPORT INFORMATION
  Report Type: Spontaneous
  Country: DE (occurrence: DE)
  Receive Date: 20151105
  Receipt Date: 20151105
  Transmission Date: 20160304
  Serious: Yes (Hospitalization, Other)
  Sender: FDA-Public Use
  Company Number: DE-BRISTOL-MYERS SQUIBB COMPANY-BMS-2015-073550

PATIENT
  Age: 51 Year
  Sex: Female

DRUGS (1)
  1. DASATINIB [Suspect]
     Active Substance: DASATINIB
     Indication: CHRONIC MYELOID LEUKAEMIA
     Dosage: 100 MG, UNK
     Route: 065

REACTIONS (9)
  - General physical health deterioration [Unknown]
  - Abdominal pain [Unknown]
  - Splenic infarction [Unknown]
  - Splenomegaly [Unknown]
  - Intracardiac thrombus [Unknown]
  - Ascites [Unknown]
  - Renal infarct [Unknown]
  - Necrosis [Unknown]
  - Vomiting [Unknown]

NARRATIVE: CASE EVENT DATE: 20150331
